FAERS Safety Report 12293742 (Version 3)
Quarter: 2016Q2

REPORT INFORMATION
  Report Type: Report from Study
  Country: US (occurrence: US)
  Receive Date: 20160421
  Receipt Date: 20160523
  Transmission Date: 20160815
  Serious: No
  Sender: FDA-Public Use
  Company Number: US-AMGEN-USASL2016049480

PATIENT
  Age: 24 Year
  Sex: Female

DRUGS (1)
  1. ENBREL [Suspect]
     Active Substance: ETANERCEPT
     Indication: RHEUMATOID ARTHRITIS
     Dosage: 50 MG, QWK
     Route: 065
     Dates: start: 20160411

REACTIONS (13)
  - Rhinorrhoea [Unknown]
  - Erythema [Unknown]
  - Injection site warmth [Recovered/Resolved]
  - Pain [Recovering/Resolving]
  - Feeling hot [Unknown]
  - Injection site irritation [Unknown]
  - Injection site erythema [Recovered/Resolved]
  - Pyrexia [Unknown]
  - Pruritus [Unknown]
  - Injection site swelling [Recovered/Resolved]
  - Oropharyngeal pain [Unknown]
  - Infection [Unknown]
  - Injection site bruising [Unknown]

NARRATIVE: CASE EVENT DATE: 2016
